FAERS Safety Report 8501035-X (Version None)
Quarter: 2012Q3

REPORT INFORMATION
  Report Type: 
  Country: None (occurrence: None)
  Receive Date: 20120710
  Receipt Date: 20120702
  Transmission Date: 20120928
  Serious: Yes (Other)
  Sender: FDA-Public Use
  Company Number: JP-VERTEX PHARMACEUTICALS INC.-AE-2012-004095

PATIENT
  Age: 68 Year
  Sex: Male

DRUGS (11)
  1. PEG-INTRON [Concomitant]
     Indication: HEPATITIS C
     Route: 058
     Dates: start: 20120306, end: 20120417
  2. PEG-INTRON [Concomitant]
     Route: 058
     Dates: start: 20120529
  3. REBETOL [Concomitant]
     Indication: HEPATITIS C
     Route: 048
     Dates: start: 20120306, end: 20120416
  4. REBETOL [Concomitant]
     Route: 048
     Dates: start: 20120529
  5. REBETOL [Concomitant]
     Route: 048
     Dates: start: 20120424, end: 20120507
  6. TSUMARA JUZENTAIHOTO EXTRACT GRANULES [Concomitant]
     Route: 048
  7. PEG-INTRON [Concomitant]
     Route: 058
     Dates: start: 20120424, end: 20120501
  8. REBETOL [Concomitant]
     Route: 048
     Dates: start: 20120417, end: 20120423
  9. TELAVIC (TELAPREVIR) [Suspect]
     Indication: HEPATITIS C
     Route: 048
     Dates: start: 20120306, end: 20120430
  10. TELAVIC (TELAPREVIR) [Suspect]
     Route: 048
     Dates: start: 20120529
  11. TELAVIC (TELAPREVIR) [Suspect]
     Route: 048
     Dates: start: 20120501, end: 20120507

REACTIONS (10)
  - PRURITUS [None]
  - RASH GENERALISED [None]
  - HAEMOGLOBIN DECREASED [None]
  - LOSS OF CONSCIOUSNESS [None]
  - INDURATION [None]
  - RENAL IMPAIRMENT [None]
  - HYPERURICAEMIA [None]
  - ECZEMA [None]
  - ANAEMIA [None]
  - OEDEMA PERIPHERAL [None]
